FAERS Safety Report 10142412 (Version 1)
Quarter: 2014Q2

REPORT INFORMATION
  Report Type: Spontaneous
  Country: GB (occurrence: GB)
  Receive Date: 20140430
  Receipt Date: 20140430
  Transmission Date: 20141212
  Serious: Yes (Other)
  Sender: FDA-Public Use
  Company Number: GB-ROCHE-1389010

PATIENT
  Age: 66 Year
  Sex: Female

DRUGS (12)
  1. MABTHERA [Suspect]
     Indication: RHEUMATOID ARTHRITIS
     Route: 042
     Dates: start: 20140403, end: 20140403
  2. ADCAL - D3 [Concomitant]
  3. ALENDRONIC ACID [Concomitant]
     Route: 065
  4. ASPIRIN [Concomitant]
  5. ATORVASTATIN [Concomitant]
  6. FOLIC ACID [Concomitant]
     Route: 065
  7. GABAPENTIN [Concomitant]
  8. METHOTREXATE [Concomitant]
     Route: 065
  9. METHYLPREDNISOLONE [Concomitant]
     Route: 042
     Dates: start: 20140403
  10. PIRITON [Concomitant]
     Route: 065
  11. RABEPRAZOLE [Concomitant]
  12. VAGIFEM [Concomitant]

REACTIONS (7)
  - Abdominal pain [Recovering/Resolving]
  - Pyrexia [Recovered/Resolved with Sequelae]
  - Headache [Recovered/Resolved with Sequelae]
  - Liver function test abnormal [Recovered/Resolved with Sequelae]
  - Liver tenderness [Unknown]
  - Nausea [Recovering/Resolving]
  - Palpitations [Recovered/Resolved with Sequelae]
